FAERS Safety Report 18315290 (Version 2)
Quarter: 2021Q1

REPORT INFORMATION
  Report Type: Report from Study
  Country: CA (occurrence: CA)
  Receive Date: 20200926
  Receipt Date: 20210319
  Transmission Date: 20210419
  Serious: Yes (Other)
  Sender: FDA-Public Use
  Company Number: CA-IPSEN BIOPHARMACEUTICALS, INC.-2020-17712

PATIENT
  Age: 56 Year
  Sex: Male

DRUGS (18)
  1. CALCIUM [Concomitant]
     Active Substance: CALCIUM
  2. SOMATULINE AUTOGEL [Suspect]
     Active Substance: LANREOTIDE ACETATE
     Route: 058
     Dates: start: 20200327, end: 2020
  3. SANDOSTATIN [Concomitant]
     Active Substance: OCTREOTIDE ACETATE
  4. SOMATULINE AUTOGEL [Suspect]
     Active Substance: LANREOTIDE ACETATE
     Route: 058
     Dates: start: 20200921
  5. RITUXAN [Concomitant]
     Active Substance: RITUXIMAB
  6. COTAZYM ECS?8 [Concomitant]
  7. LOMOTIL [Concomitant]
     Active Substance: ATROPINE SULFATE\DIPHENOXYLATE HYDROCHLORIDE
  8. VITAMIN D [Concomitant]
     Active Substance: VITAMIN D NOS
  9. CANNABIS OIL [Concomitant]
     Active Substance: CANNABIS SATIVA SEED OIL\HERBALS
  10. SOMATULINE AUTOGEL [Suspect]
     Active Substance: LANREOTIDE ACETATE
     Indication: NEUROENDOCRINE TUMOUR
     Route: 058
     Dates: start: 20200227, end: 2020
  11. METONIA [Concomitant]
     Active Substance: METOCLOPRAMIDE
  12. DILAUDID [Concomitant]
     Active Substance: HYDROMORPHONE HYDROCHLORIDE
  13. VITAMIN B12 [Concomitant]
     Active Substance: CYANOCOBALAMIN
  14. LOPERAMIDE [Concomitant]
     Active Substance: LOPERAMIDE
  15. SOMATULINE AUTOGEL [Suspect]
     Active Substance: LANREOTIDE ACETATE
     Route: 058
     Dates: start: 20200507, end: 2020
  16. MEDROL [Concomitant]
     Active Substance: METHYLPREDNISOLONE
  17. MAGNESIUM [Concomitant]
     Active Substance: MAGNESIUM
  18. ATIVAN [Concomitant]
     Active Substance: LORAZEPAM

REACTIONS (9)
  - Gastritis [Recovering/Resolving]
  - Flushing [Recovering/Resolving]
  - Pain in extremity [Recovering/Resolving]
  - Dizziness [Recovering/Resolving]
  - Nausea [Recovering/Resolving]
  - Abdominal pain upper [Recovering/Resolving]
  - Diarrhoea [Recovering/Resolving]
  - Tinnitus [Recovering/Resolving]
  - Off label use [Unknown]

NARRATIVE: CASE EVENT DATE: 2020
